APPROVED DRUG PRODUCT: MEFOXIN
Active Ingredient: CEFOXITIN SODIUM
Strength: EQ 10GM BASE/VIAL **Federal Register determination that product was not discontinued or withdrawn for safety or effectiveness reasons**
Dosage Form/Route: INJECTABLE;INJECTION
Application: N050517 | Product #003
Applicant: PHARMOBEDIENT CONSULTING LLC
Approved: Approved Prior to Jan 1, 1982 | RLD: Yes | RS: No | Type: DISCN